FAERS Safety Report 8327839-4 (Version None)
Quarter: 2012Q2

REPORT INFORMATION
  Report Type: 
  Country: None (occurrence: None)
  Receive Date: 20120502
  Receipt Date: 20120425
  Transmission Date: 20120825
  Serious: Yes (Congenital Anomaly, Other)
  Sender: FDA-Public Use
  Company Number: GB-ACCORD-013310

PATIENT
  Sex: Female
  Weight: 2.54 kg

DRUGS (1)
  1. QUETIAPINE FUMARATE [Suspect]
     Indication: PERSONALITY DISORDER
     Route: 064

REACTIONS (2)
  - FOETAL EXPOSURE TIMING UNSPECIFIED [None]
  - CLEFT LIP AND PALATE [None]
